FAERS Safety Report 21489948 (Version 1)
Quarter: 2022Q4

REPORT INFORMATION
  Report Type: Spontaneous
  Country: GB (occurrence: GB)
  Receive Date: 20221021
  Receipt Date: 20221021
  Transmission Date: 20230113
  Serious: Yes (Life-Threatening, Hospitalization, Disabling)
  Sender: FDA-Public Use
  Company Number: GB-SUN PHARMACEUTICAL INDUSTRIES LTD-2022RR-360440

PATIENT
  Age: 39 Year
  Sex: Male
  Weight: 73 kg

DRUGS (2)
  1. SERTRALINE [Suspect]
     Active Substance: SERTRALINE HYDROCHLORIDE
     Indication: Anxiety
     Dosage: 150MG ON
     Route: 065
     Dates: start: 20210201, end: 20221003
  2. PREDNISOLONE [Concomitant]
     Active Substance: PREDNISOLONE
     Indication: Respiratory symptom
     Dosage: UNK
     Route: 065
     Dates: start: 20220401, end: 20221007

REACTIONS (1)
  - Interstitial lung disease [Not Recovered/Not Resolved]

NARRATIVE: CASE EVENT DATE: 20221003
